FAERS Safety Report 14766058 (Version 5)
Quarter: 2018Q3

REPORT INFORMATION
  Report Type: Report from Study
  Country: US (occurrence: US)
  Receive Date: 20180416
  Receipt Date: 20180709
  Transmission Date: 20181010
  Serious: Yes (Hospitalization, Other)
  Sender: FDA-Public Use
  Company Number: US-ASTELLAS-2018US014342

PATIENT
  Age: 64 Year
  Sex: Male

DRUGS (2)
  1. TACROLIMUS. [Suspect]
     Active Substance: TACROLIMUS
     Indication: RENAL TRANSPLANT
     Dosage: 0.5 MG, ONCE DAILY EVERY MORNING
     Route: 048
     Dates: start: 20170129
  2. TACROLIMUS. [Suspect]
     Active Substance: TACROLIMUS
     Indication: RENAL TRANSPLANT
     Dosage: 1 MG, TWICE DAILY (1 EVERY MORNING AND 1 EVERY EVENING)
     Route: 048
     Dates: start: 20170129

REACTIONS (4)
  - General physical health deterioration [Not Recovered/Not Resolved]
  - Asthenia [Not Recovered/Not Resolved]
  - Encephalitis [Not Recovered/Not Resolved]
  - Balance disorder [Recovering/Resolving]

NARRATIVE: CASE EVENT DATE: 201703
